FAERS Safety Report 5557590-5 (Version None)
Quarter: 2007Q4

REPORT INFORMATION
  Report Type: 
  Country: None (occurrence: None)
  Receive Date: 20071214
  Receipt Date: 20071207
  Transmission Date: 20080405
  Serious: Yes (Other)
  Sender: FDA-Public Use
  Company Number: A0697951A

PATIENT
  Sex: Female

DRUGS (3)
  1. EPZICOM [Suspect]
     Indication: HIV INFECTION
     Dosage: 1TAB PER DAY
     Route: 048
  2. REYATAZ [Suspect]
     Indication: HIV INFECTION
     Route: 048
  3. SAQUINAVIR [Concomitant]

REACTIONS (5)
  - DYSPNOEA [None]
  - HYPERBILIRUBINAEMIA [None]
  - HYPERSENSITIVITY [None]
  - HYPOTENSION [None]
  - PYREXIA [None]
